FAERS Safety Report 6710719-5 (Version None)
Quarter: 2010Q1

REPORT INFORMATION
  Report Type: 
  Country: None (occurrence: None)
  Receive Date: 20100304
  Receipt Date: 20100304
  Transmission Date: 20100710
  Serious: Yes (Other)
  Sender: FDA-Public Use
  Company Number: None

PATIENT
  Age: 53 Year
  Sex: Male
  Weight: 107 kg

DRUGS (11)
  1. BELATACEPT 250 MG, VIALS (20 MG/CC) BRISTOL - MEYERS SQUIBB [Suspect]
     Indication: IMMUNOSUPPRESSION
     Dosage: BELATACEPT  10 MG/KG IV
     Route: 042
     Dates: start: 20090829, end: 20100101
  2. BELATACEPT [Suspect]
     Indication: IMMUNOSUPPRESSION
     Dosage: BELATACEPT 5 MG/KG IV
     Route: 042
     Dates: start: 20100212
  3. CAMPATH [Concomitant]
  4. RAPAMUNE [Concomitant]
  5. RAPAMUNE [Concomitant]
  6. K PHOS NEUTRAL [Concomitant]
  7. M.V.I. [Concomitant]
  8. TRAZODONE HCL [Concomitant]
  9. LOPRESSOR [Concomitant]
  10. PRAVACHOL [Concomitant]
  11. SINGULAIR [Concomitant]

REACTIONS (4)
  - BK VIRUS INFECTION [None]
  - KIDNEY FIBROSIS [None]
  - RENAL TUBULAR ATROPHY [None]
  - TRANSPLANT REJECTION [None]
